FAERS Safety Report 5487997-6 (Version None)
Quarter: 2007Q4

REPORT INFORMATION
  Report Type: 
  Country: None (occurrence: None)
  Receive Date: 20071001
  Receipt Date: 20070604
  Transmission Date: 20080405
  Serious: Yes (Other)
  Sender: FDA-Public Use
  Company Number: 200713125GDS

PATIENT
  Age: 38 Year
  Sex: Male

DRUGS (2)
  1. CIPRO [Suspect]
     Indication: INFECTION PROPHYLAXIS
     Dosage: ORAL
     Route: 048
  2. CIPRO [Suspect]
     Indication: PROSTATE INFECTION
     Dosage: ORAL
     Route: 048

REACTIONS (2)
  - CLOSTRIDIAL INFECTION [None]
  - DIARRHOEA [None]
